FAERS Safety Report 4648574-X (Version None)
Quarter: 2005Q2

REPORT INFORMATION
  Report Type: 
  Country: None (occurrence: None)
  Receive Date: 20050429
  Receipt Date: 20050419
  Transmission Date: 20051028
  Serious: Yes (Hospitalization)
  Sender: FDA-Public Use
  Company Number: HU-BRISTOL-MYERS SQUIBB COMPANY-12938809

PATIENT
  Age: 52 Year
  Sex: Male

DRUGS (3)
  1. ARIPIPRAZOLE [Suspect]
     Indication: SCHIZOPHRENIA
     Route: 048
     Dates: start: 20041103
  2. CLONAZEPAM [Concomitant]
     Dates: start: 20040615
  3. PROCYCLIDINE HYDROCHLORIDE 2MG TAB [Concomitant]
     Dates: start: 20041008

REACTIONS (1)
  - SCHIZOPHRENIA [None]
